FAERS Safety Report 5589249-2 (Version None)
Quarter: 2008Q1

REPORT INFORMATION
  Report Type: 
  Country: None (occurrence: None)
  Receive Date: 20080114
  Receipt Date: 20080104
  Transmission Date: 20080703
  Serious: Yes (Hospitalization, Other)
  Sender: FDA-Public Use
  Company Number: PHEH2007US16253

PATIENT
  Age: 83 Year
  Sex: Female
  Weight: 68.027 kg

DRUGS (8)
  1. EXELON PATCH [Suspect]
     Indication: DEMENTIA ALZHEIMER'S TYPE
     Dosage: 9.5 MG, QD
     Route: 062
     Dates: start: 20071103, end: 20071225
  2. EXELON [Concomitant]
     Indication: DEMENTIA ALZHEIMER'S TYPE
     Dates: start: 20071201
  3. LEXAPRO [Concomitant]
     Indication: ANXIETY
     Dosage: 10 MG, QD
     Route: 048
  4. FOSAMAX [Concomitant]
     Indication: OSTEOPOROSIS
  5. VYTORIN [Concomitant]
     Indication: HYPERCHOLESTEROLAEMIA
     Dosage: 10/20 MG, DAILY
     Route: 048
  6. ACETYLSALICYLIC ACID SRT [Concomitant]
  7. PATANOL [Concomitant]
  8. NAMENDA [Concomitant]
     Indication: DEMENTIA ALZHEIMER'S TYPE
     Dosage: 10 /10 MG, UNK
     Route: 048

REACTIONS (3)
  - CONFUSIONAL STATE [None]
  - MEDICATION ERROR [None]
  - MENTAL STATUS CHANGES [None]
